FAERS Safety Report 5876626-5 (Version None)
Quarter: 2008Q3

REPORT INFORMATION
  Report Type: 
  Country: None (occurrence: None)
  Receive Date: 20080818
  Receipt Date: 20080102
  Transmission Date: 20090109
  Serious: Yes (Hospitalization)
  Sender: FDA-Public Use
  Company Number: 20074262

PATIENT
  Sex: Female

DRUGS (1)
  1. LIORESAL [Suspect]
     Indication: MUSCLE SPASTICITY
     Dosage: 50 MCG; THEN 25 MCG, DAILY, INTRATHECAL
     Route: 037

REACTIONS (8)
  - GAIT DISTURBANCE [None]
  - HEADACHE [None]
  - HYPERTONIA [None]
  - HYPOTONIA [None]
  - NAUSEA [None]
  - PARAESTHESIA [None]
  - URINARY RETENTION [None]
  - VOMITING [None]
